APPROVED DRUG PRODUCT: NEXICLON XR
Active Ingredient: CLONIDINE
Strength: EQ 0.26MG BASE
Dosage Form/Route: TABLET, EXTENDED RELEASE;ORAL
Application: N022500 | Product #002
Applicant: ATHENA BIOSCIENCE LLC
Approved: Dec 3, 2009 | RLD: No | RS: No | Type: DISCN

PATENTS:
Patent 8337890 | Expires: Apr 17, 2027
Patent 8623409 | Expires: Sep 8, 2031